FAERS Safety Report 20727961 (Version 1)
Quarter: 2022Q2

REPORT INFORMATION
  Report Type: Report from Study
  Country: US (occurrence: US)
  Receive Date: 20220419
  Receipt Date: 20220419
  Transmission Date: 20220720
  Serious: Yes (Hospitalization, Other)
  Sender: FDA-Public Use
  Company Number: US-ABBVIE-22K-163-4360580-00

PATIENT
  Sex: Female

DRUGS (2)
  1. IMBRUVICA [Suspect]
     Active Substance: IBRUTINIB
     Indication: Product used for unknown indication
     Route: 048
     Dates: end: 20220319
  2. IMBRUVICA [Suspect]
     Active Substance: IBRUTINIB
     Route: 048
     Dates: start: 20220322

REACTIONS (8)
  - Intestinal obstruction [Recovering/Resolving]
  - Hospitalisation [Recovering/Resolving]
  - COVID-19 [Recovering/Resolving]
  - Urinary tract infection [Recovering/Resolving]
  - Gait inability [Recovering/Resolving]
  - Rash macular [Recovering/Resolving]
  - Dysstasia [Recovering/Resolving]
  - Memory impairment [Recovering/Resolving]
